FAERS Safety Report 25518052 (Version 3)
Quarter: 2025Q3

REPORT INFORMATION
  Report Type: Spontaneous
  Country: JP (occurrence: JP)
  Receive Date: 20250704
  Receipt Date: 20250802
  Transmission Date: 20251020
  Serious: Yes (Other)
  Sender: ALEXION PHARMACEUTICALS
  Company Number: JP-ASTRAZENECA-250058750_010520_P_1

PATIENT
  Age: 70 Year
  Sex: Female
  Weight: 60.6 kg

DRUGS (12)
  1. FASLODEX [Suspect]
     Active Substance: FULVESTRANT
     Indication: Breast cancer female
     Dosage: 500 MILLIGRAM, Q4W
     Dates: start: 20250528
  2. FASLODEX [Suspect]
     Active Substance: FULVESTRANT
     Indication: Metastases to lymph nodes
  3. TRUQAP [Suspect]
     Active Substance: CAPIVASERTIB
     Indication: Breast cancer female
     Dosage: 400 MILLIGRAM, BID
     Dates: start: 20250529, end: 20250601
  4. TRUQAP [Suspect]
     Active Substance: CAPIVASERTIB
     Indication: Metastases to lymph nodes
     Dosage: 400 MILLIGRAM, BID
     Dates: start: 20250605, end: 20250607
  5. TRUQAP [Suspect]
     Active Substance: CAPIVASERTIB
     Dosage: 320 MILLIGRAM, BID
     Dates: start: 20250619
  6. NOLVADEX [Suspect]
     Active Substance: TAMOXIFEN CITRATE
     Route: 065
  7. IBRANCE [Concomitant]
     Active Substance: PALBOCICLIB
     Route: 065
  8. LETROZOLE [Concomitant]
     Active Substance: LETROZOLE
     Route: 065
  9. ABEMACICLIB [Concomitant]
     Active Substance: ABEMACICLIB
     Route: 065
  10. FEXOFENADINE [Concomitant]
     Active Substance: FEXOFENADINE HYDROCHLORIDE
     Route: 065
  11. BETAMETHASONE DIPROPIONATE [Concomitant]
     Active Substance: BETAMETHASONE DIPROPIONATE
     Route: 065
  12. GLYCOSAMINOGLYCANS [Concomitant]
     Active Substance: GLYCOSAMINOGLYCANS
     Route: 065

REACTIONS (5)
  - Blood creatinine increased [Unknown]
  - Proteinuria [Unknown]
  - Drug eruption [Recovered/Resolved]
  - Renal impairment [Recovered/Resolved]
  - Glycosylated haemoglobin increased [Not Recovered/Not Resolved]

NARRATIVE: CASE EVENT DATE: 20250605
